FAERS Safety Report 7162125-X (Version None)
Quarter: 2010Q4

REPORT INFORMATION
  Report Type: 
  Country: None (occurrence: None)
  Receive Date: 20101215
  Receipt Date: 20090817
  Transmission Date: 20110411
  Serious: Yes (Other)
  Sender: FDA-Public Use
  Company Number: US-PFIZER INC-2008054029

PATIENT
  Sex: Female
  Weight: 77.098 kg

DRUGS (11)
  1. LYRICA [Suspect]
     Indication: FIBROMYALGIA
     Dosage: 225 MG, 1X/DAY
     Route: 048
  2. PREDNISONE [Suspect]
     Indication: SINUSITIS
     Dosage: UNK
  3. CYMBALTA [Concomitant]
  4. KLONOPIN [Concomitant]
  5. ZANAFLEX [Concomitant]
  6. PLAQUENIL [Concomitant]
  7. BENADRYL [Concomitant]
  8. RELPAX [Concomitant]
  9. DIFLUCAN [Concomitant]
  10. LIDEX [Concomitant]
  11. ULTRAM [Concomitant]

REACTIONS (3)
  - CONCUSSION [None]
  - FALL [None]
  - MANIA [None]
